FAERS Safety Report 19251689 (Version 2)
Quarter: 2021Q4

REPORT INFORMATION
  Report Type: Other
  Country: DE (occurrence: DE)
  Receive Date: 20210513
  Receipt Date: 20211113
  Transmission Date: 20220303
  Serious: Yes (Hospitalization)
  Sender: FDA-Public Use
  Company Number: DE-ROCHE-2830058

PATIENT
  Age: 74 Year
  Sex: Female

DRUGS (10)
  1. TOCILIZUMAB [Suspect]
     Active Substance: TOCILIZUMAB
     Indication: Rheumatoid arthritis
     Route: 042
  2. PREDNISOLONE [Suspect]
     Active Substance: PREDNISOLONE
     Indication: Rheumatoid arthritis
     Dosage: CUMULATIVE DOSE 4850 MG
     Route: 065
     Dates: start: 200405, end: 200812
  3. RISEDRONATE SODIUM [Suspect]
     Active Substance: RISEDRONATE SODIUM
     Indication: Osteoporosis
     Dosage: CUMULATIVE DOSE 3080 MG
     Route: 048
     Dates: start: 200502, end: 200610
  4. INFLIXIMAB [Suspect]
     Active Substance: INFLIXIMAB
     Indication: Rheumatoid arthritis
     Dosage: 200-400 MG, EVERY 6-8 WEEKS
     Route: 042
     Dates: start: 200507, end: 200810
  5. METHOTREXATE [Suspect]
     Active Substance: METHOTREXATE
     Indication: Rheumatoid arthritis
     Route: 065
     Dates: start: 200405, end: 200812
  6. PANTOPRAZOLE [Concomitant]
     Active Substance: PANTOPRAZOLE
  7. CLINDAMYCIN [Concomitant]
     Active Substance: CLINDAMYCIN
     Dosage: HIGH DOSE
     Route: 042
  8. IBUPROFEN [Concomitant]
     Active Substance: IBUPROFEN
  9. CALCIUM\CHOLECALCIFEROL [Concomitant]
     Active Substance: CALCIUM\CHOLECALCIFEROL
     Dosage: 500 MG/10MCG 2X/DAY
  10. FOLIC ACID [Concomitant]
     Active Substance: FOLIC ACID
     Dosage: 10 MG, QW

REACTIONS (1)
  - Osteonecrosis of jaw [Recovered/Resolved]
